FAERS Safety Report 4844474-0 (Version None)
Quarter: 2005Q4

REPORT INFORMATION
  Report Type: 
  Country: None (occurrence: None)
  Receive Date: 20051202
  Receipt Date: 20040227
  Transmission Date: 20060501
  Serious: Yes (Hospitalization, Disabling)
  Sender: FDA-Public Use
  Company Number: US-MERCK-0403USA00007

PATIENT
  Age: 71 Year
  Sex: Female
  Weight: 84 kg

DRUGS (12)
  1. VIOXX [Suspect]
     Indication: ARTHRALGIA
     Route: 048
     Dates: start: 20020212, end: 20020501
  2. VIOXX [Suspect]
     Indication: OSTEOARTHRITIS
     Route: 048
     Dates: start: 20020212, end: 20020501
  3. SYNTHROID [Concomitant]
     Route: 065
  4. XANAX [Concomitant]
     Route: 065
     Dates: start: 19890101
  5. XANAX [Concomitant]
     Route: 065
     Dates: start: 19890101
  6. ZOLOFT [Concomitant]
     Route: 065
     Dates: start: 20020401, end: 20020401
  7. ZOLOFT [Concomitant]
     Route: 065
     Dates: start: 20000228, end: 20020401
  8. ZOLOFT [Concomitant]
     Route: 065
     Dates: start: 20020401
  9. TYLENOL [Concomitant]
     Route: 065
  10. XALATAN [Concomitant]
     Route: 047
  11. DARVOCET-N 100 [Concomitant]
     Route: 065
  12. ALPHAGAN [Concomitant]
     Route: 047

REACTIONS (45)
  - ANXIETY [None]
  - AORTIC ANEURYSM [None]
  - ATRIAL SEPTAL DEFECT [None]
  - BACK PAIN [None]
  - BLOOD PRESSURE SYSTOLIC INCREASED [None]
  - BRONCHITIS [None]
  - BURSITIS [None]
  - CAROTID ARTERY ATHEROMA [None]
  - CELLULITIS [None]
  - CEREBROVASCULAR ACCIDENT [None]
  - CHRONIC OBSTRUCTIVE PULMONARY DISEASE [None]
  - CONFUSIONAL STATE [None]
  - CORONARY ARTERY DISEASE [None]
  - DEEP VEIN THROMBOSIS [None]
  - DEPRESSION [None]
  - DILATATION ATRIAL [None]
  - DRUG HYPERSENSITIVITY [None]
  - DRUG INEFFECTIVE [None]
  - FALL [None]
  - FEAR [None]
  - HYPERCHOLESTEROLAEMIA [None]
  - HYPOAESTHESIA [None]
  - HYPOREFLEXIA [None]
  - HYPOTHYROIDISM [None]
  - HYPOXIA [None]
  - INTERVERTEBRAL DISC PROTRUSION [None]
  - ISCHAEMIC STROKE [None]
  - JOINT INJURY [None]
  - JOINT SWELLING [None]
  - LIMB INJURY [None]
  - LUMBAR SPINAL STENOSIS [None]
  - MUSCLE SPASMS [None]
  - NERVOUSNESS [None]
  - OBSTRUCTIVE AIRWAYS DISORDER [None]
  - OEDEMA PERIPHERAL [None]
  - PANIC DISORDER WITH AGORAPHOBIA [None]
  - PARAESTHESIA [None]
  - RADICULITIS [None]
  - SCIATICA [None]
  - SCOLIOSIS [None]
  - SPINAL COLUMN STENOSIS [None]
  - SPINAL OSTEOARTHRITIS [None]
  - SPONDYLOLISTHESIS [None]
  - TENDERNESS [None]
  - TENDON INJURY [None]
